FAERS Safety Report 7933572 (Version 3)
Quarter: 2014Q1

REPORT INFORMATION
  Report Type: Spontaneous
  Country: US (occurrence: US)
  Receive Date: 20110506
  Receipt Date: 20140124
  Transmission Date: 20141002
  Serious: Yes (Hospitalization)
  Sender: FDA-Public Use
  Company Number: US-BAYER-2010-002232

PATIENT
  Age: 18 Year
  Sex: Female
  Weight: 88.43 kg

DRUGS (10)
  1. YAZ [Suspect]
     Indication: DYSMENORRHOEA
     Route: 048
  2. YAZ [Suspect]
     Indication: MENORRHAGIA
     Dosage: UNK
     Route: 048
     Dates: start: 20080714, end: 200910
  3. YAZ [Suspect]
     Indication: MENSTRUATION IRREGULAR
     Dosage: UNK
     Dates: start: 200907, end: 200909
  4. YAZ [Suspect]
     Indication: PREMENSTRUAL SYNDROME
     Dosage: UNK
     Dates: start: 201004
  5. LOESTRIN [Concomitant]
     Dosage: UNK
     Dates: start: 20091109
  6. AZITHROMYCIN [Concomitant]
     Dosage: 250 MG, UNK
     Dates: start: 20090828
  7. TAMIFLU [Concomitant]
     Dosage: 75 MG, QD
     Route: 048
     Dates: start: 20090828
  8. PROMETHAZINE [Concomitant]
     Indication: NAUSEA
     Dosage: 25 MG, 1 TABLET EVERY 6 HOURS AS NEEDED
     Route: 048
     Dates: start: 20090828
  9. HYDROCODONE W/ACETAMINOPHEN [Concomitant]
     Indication: PAIN
     Dosage: 1 TO 2 TABLETS EVERY 6 TO 8 HOURS AS NEEDED
     Route: 048
  10. ONDANSETRON [Concomitant]
     Indication: NAUSEA
     Dosage: 4 MG EVERY 8 HOURS AS NEEDEDUNK
     Dates: start: 20091025

REACTIONS (3)
  - Gallbladder non-functioning [None]
  - Pain [None]
  - Cholecystitis acute [None]
